FAERS Safety Report 6585706-0 (Version None)
Quarter: 2010Q1

REPORT INFORMATION
  Report Type: 
  Country: None (occurrence: None)
  Receive Date: 20100217
  Receipt Date: 20100212
  Transmission Date: 20100710
  Serious: Yes (Hospitalization)
  Sender: FDA-Public Use
  Company Number: JP-ROXANE LABORATORIES, INC.-2010-RO-00153RO

PATIENT
  Age: 2 Year
  Sex: Male
  Weight: 11 kg

DRUGS (7)
  1. AZATHIOPRINE [Suspect]
     Indication: CROHN'S DISEASE
  2. PREDNISOLONE [Suspect]
     Indication: CROHN'S DISEASE
  3. PREDNISOLONE [Suspect]
     Route: 048
  4. ANTIBIOTICS [Concomitant]
     Indication: BACTERIAL INFECTION
  5. RIFAMPICIN [Concomitant]
     Indication: BOVINE TUBERCULOSIS
  6. ISONIAZID [Concomitant]
     Indication: BOVINE TUBERCULOSIS
  7. STREPTOMYCIN [Concomitant]
     Indication: BOVINE TUBERCULOSIS

REACTIONS (2)
  - BOVINE TUBERCULOSIS [None]
  - UPPER RESPIRATORY TRACT INFECTION [None]
